FAERS Safety Report 17150987 (Version 1)
Quarter: 2019Q4

REPORT INFORMATION
  Report Type: Spontaneous
  Country: US (occurrence: US)
  Receive Date: 20191212
  Receipt Date: 20191212
  Transmission Date: 20200122
  Serious: Yes (Other)
  Sender: FDA-Public Use
  Company Number: None

PATIENT
  Age: 34 Year
  Sex: Female
  Weight: 62 kg

DRUGS (3)
  1. IBUPORFEN 600 MG [Concomitant]
     Dates: start: 20191210, end: 20191210
  2. DIPHENHYDRAMINE 25 MG IVP [Concomitant]
     Dates: start: 20191210, end: 20191210
  3. OCREVUS [Suspect]
     Active Substance: OCRELIZUMAB
     Indication: MULTIPLE SCLEROSIS
     Dosage: ?          OTHER FREQUENCY:ONE TIME INFUSION;?
     Route: 041
     Dates: start: 20191210, end: 20191210

REACTIONS (4)
  - Discomfort [None]
  - Pelvic discomfort [None]
  - Ear pruritus [None]
  - Throat irritation [None]

NARRATIVE: CASE EVENT DATE: 20191210
